FAERS Safety Report 23687906 (Version 5)
Quarter: 2024Q2

REPORT INFORMATION
  Report Type: Spontaneous
  Country: US (occurrence: US)
  Receive Date: 20240329
  Receipt Date: 20240627
  Transmission Date: 20240716
  Serious: Yes (Death, Other)
  Sender: FDA-Public Use
  Company Number: US-CTI BIOPHARMA-2024US04523

PATIENT
  Age: 74 Year
  Sex: Female

DRUGS (4)
  1. VONJO [Suspect]
     Active Substance: PACRITINIB
     Indication: Myelofibrosis
     Dosage: 200 MG, BID
     Route: 048
     Dates: start: 20240210
  2. VONJO [Suspect]
     Active Substance: PACRITINIB
     Dosage: 100 MG, BID
     Route: 048
     Dates: start: 20240210
  3. VONJO [Suspect]
     Active Substance: PACRITINIB
     Dosage: DAILY
     Route: 048
     Dates: start: 20240210
  4. VONJO [Suspect]
     Active Substance: PACRITINIB
     Dosage: UNIT: 100 MG.?2 100MG CAPS BID
     Route: 048

REACTIONS (4)
  - Cerebral haemorrhage [Unknown]
  - Myelofibrosis [Unknown]
  - Condition aggravated [Unknown]
  - Death [Fatal]

NARRATIVE: CASE EVENT DATE: 20240606
